FAERS Safety Report 11686206 (Version 8)
Quarter: 2015Q4

REPORT INFORMATION
  Report Type: Spontaneous
  Country: US (occurrence: US)
  Receive Date: 20151030
  Receipt Date: 20151230
  Transmission Date: 20160304
  Serious: Yes (Hospitalization)
  Sender: FDA-Public Use
  Company Number: US-UNITED THERAPEUTICS-UNT-2015-013173

PATIENT
  Age: 60 Year
  Sex: Female
  Weight: 90.7 kg

DRUGS (4)
  1. REMODULIN [Suspect]
     Active Substance: TREPROSTINIL
     Indication: PULMONARY HYPERTENSION
     Dosage: 0.025 ?G/KG, CONTINUING
     Route: 041
     Dates: start: 20150831
  2. WARFARIN [Concomitant]
     Active Substance: WARFARIN
     Indication: PRODUCT USED FOR UNKNOWN INDICATION
  3. ADEMPAS [Concomitant]
     Active Substance: RIOCIGUAT
     Indication: PRODUCT USED FOR UNKNOWN INDICATION
  4. REMODULIN [Suspect]
     Active Substance: TREPROSTINIL
     Dosage: 0.027 ?G/KG, CONTINUING
     Route: 041

REACTIONS (6)
  - Mitral valve prolapse [Unknown]
  - Pain in extremity [Unknown]
  - Fluid retention [Unknown]
  - Device leakage [Unknown]
  - Drug dose omission [Unknown]
  - Cardiac failure congestive [Unknown]

NARRATIVE: CASE EVENT DATE: 20151017
